FAERS Safety Report 23091182 (Version 2)
Quarter: 2024Q2

REPORT INFORMATION
  Report Type: Report from Study
  Country: US (occurrence: US)
  Receive Date: 20231020
  Receipt Date: 20240613
  Transmission Date: 20240716
  Serious: Yes (Other)
  Sender: FDA-Public Use
  Company Number: US-PFIZER INC-PV202300147403

PATIENT
  Age: 62 Year
  Sex: Female

DRUGS (6)
  1. BRAFTOVI [Suspect]
     Active Substance: ENCORAFENIB
     Indication: Malignant melanoma
     Dosage: 450 MG, 1X/DAY
     Route: 048
     Dates: start: 20230825, end: 20230907
  2. BRAFTOVI [Suspect]
     Active Substance: ENCORAFENIB
     Dosage: 225 MG, 1X/DAY
     Route: 048
     Dates: start: 20230918
  3. BRAFTOVI [Suspect]
     Active Substance: ENCORAFENIB
     Dosage: 150 MG, 1X/DAY
     Route: 048
  4. MEKTOVI [Suspect]
     Active Substance: BINIMETINIB
     Indication: Malignant melanoma
     Dosage: 45 MG, 2X/DAY
     Route: 048
     Dates: start: 20230825, end: 20230907
  5. MEKTOVI [Suspect]
     Active Substance: BINIMETINIB
     Dosage: 30 MG, 2X/DAY
     Route: 048
     Dates: start: 20230918
  6. GABAPENTIN [Concomitant]
     Active Substance: GABAPENTIN
     Dosage: UNK

REACTIONS (17)
  - Atypical pneumonia [Unknown]
  - Neuropathy peripheral [Not Recovered/Not Resolved]
  - Metamorphopsia [Recovered/Resolved]
  - Rash [Recovered/Resolved]
  - Decreased appetite [Recovered/Resolved]
  - Nausea [Unknown]
  - Fatigue [Not Recovered/Not Resolved]
  - Pain in extremity [Unknown]
  - Pyrexia [Unknown]
  - Chills [Unknown]
  - Dry mouth [Unknown]
  - Muscular weakness [Unknown]
  - Skin exfoliation [Unknown]
  - Asthenia [Recovered/Resolved]
  - Weight decreased [Recovered/Resolved]
  - Balance disorder [Not Recovered/Not Resolved]
  - Off label use [Unknown]

NARRATIVE: CASE EVENT DATE: 20230825
